FAERS Safety Report 7522374-5 (Version None)
Quarter: 2011Q2

REPORT INFORMATION
  Report Type: 
  Country: None (occurrence: None)
  Receive Date: 20110603
  Receipt Date: 20110520
  Transmission Date: 20111010
  Serious: Yes (Other)
  Sender: FDA-Public Use
  Company Number: US-ELI_LILLY_AND_COMPANY-US201105007379

PATIENT
  Age: 83 Year
  Sex: Female

DRUGS (1)
  1. CYMBALTA [Suspect]
     Indication: DEPRESSION
     Dosage: 30 MG, UNK

REACTIONS (4)
  - TONGUE DISORDER [None]
  - SHOULDER ARTHROPLASTY [None]
  - SWOLLEN TONGUE [None]
  - GLOSSODYNIA [None]
